FAERS Safety Report 24301056 (Version 2)
Quarter: 2024Q3

REPORT INFORMATION
  Report Type: Spontaneous
  Country: FR (occurrence: FR)
  Receive Date: 20240910
  Receipt Date: 20240912
  Transmission Date: 20241017
  Serious: Yes (Other)
  Sender: SANDOZ
  Company Number: FR-ROCHE-10000019787

PATIENT
  Age: 72 Year
  Sex: Male

DRUGS (2)
  1. ATEZOLIZUMAB [Suspect]
     Active Substance: ATEZOLIZUMAB
     Indication: Non-small cell lung cancer
     Dosage: D1 = D21
     Route: 065
  2. MYCOPHENOLATE MOFETIL [Suspect]
     Active Substance: MYCOPHENOLATE MOFETIL
     Indication: Autoimmune cholangitis
     Dosage: UNK
     Route: 065

REACTIONS (2)
  - Autoimmune cholangitis [Unknown]
  - Off label use [Unknown]

NARRATIVE: CASE EVENT DATE: 20230101
